FAERS Safety Report 7796897-8 (Version None)
Quarter: 2011Q4

REPORT INFORMATION
  Report Type: 
  Country: None (occurrence: None)
  Receive Date: 20111005
  Receipt Date: 20110921
  Transmission Date: 20120403
  Serious: No
  Sender: FDA-Public Use
  Company Number: US-B.I. PHARMACEUTICALS,INC./RIDGEFIELD-2011-BP-22600BP

PATIENT
  Sex: Female

DRUGS (11)
  1. LIPITOR [Concomitant]
     Indication: BLOOD CHOLESTEROL INCREASED
  2. FUROSEMIDE [Concomitant]
  3. CARTIA XT [Concomitant]
  4. POTASSIUM [Concomitant]
  5. RESTASIS [Concomitant]
     Indication: DRY EYE
  6. PRADAXA [Suspect]
     Indication: ATRIAL FIBRILLATION
     Dosage: 300 MG
     Route: 048
     Dates: start: 20110829
  7. COREG [Concomitant]
     Indication: CARDIAC DISORDER
  8. DIOVAN [Concomitant]
     Indication: HYPERTENSION
  9. TYLENOL-500 [Concomitant]
     Indication: ARTHRITIS
  10. ASPIRIN [Concomitant]
     Indication: CARDIAC DISORDER
  11. VIT D [Concomitant]
     Indication: BONE DISORDER

REACTIONS (5)
  - DYSPNOEA [None]
  - ERUCTATION [None]
  - CHEST DISCOMFORT [None]
  - SENSATION OF FOREIGN BODY [None]
  - DYSPEPSIA [None]
